FAERS Safety Report 15794863 (Version 2)
Quarter: 2019Q1

REPORT INFORMATION
  Report Type: Report from Study
  Country: IT (occurrence: IT)
  Receive Date: 20190107
  Receipt Date: 20190207
  Transmission Date: 20190417
  Serious: Yes (Other)
  Sender: FDA-Public Use
  Company Number: IT-PFIZER INC-2019006083

PATIENT
  Age: 90 Year
  Sex: Female

DRUGS (7)
  1. CONTRAMAL [Concomitant]
     Active Substance: TRAMADOL HYDROCHLORIDE
     Dosage: 30 DF, 1X/DAY
  2. DELTACORTENE [Suspect]
     Active Substance: PREDNISONE
     Indication: RASH GENERALISED
     Dosage: UNK
     Route: 048
     Dates: end: 201807
  3. FUCIDIN H [FUSIDATE SODIUM;HYDROCORTISONE ACETATE] [Concomitant]
     Dosage: 1 DF, 1X/DAY
  4. LASIX [Concomitant]
     Active Substance: FUROSEMIDE
     Dosage: 1 DF, 1X/DAY
  5. RANITIDIN RATIOPHARM [Concomitant]
     Dosage: 300 MG, 1X/DAY
  6. MEDROL [Suspect]
     Active Substance: METHYLPREDNISOLONE
     Indication: RASH GENERALISED
     Dosage: 16 MG, 1X/DAY
     Route: 048
     Dates: end: 201807
  7. ZYPREXA [Concomitant]
     Active Substance: OLANZAPINE
     Dosage: 0.5 DF, 1X/DAY

REACTIONS (2)
  - Weight decreased [Recovering/Resolving]
  - Decreased appetite [Recovering/Resolving]

NARRATIVE: CASE EVENT DATE: 20180430
